FAERS Safety Report 11980964 (Version 1)
Quarter: 2016Q1

REPORT INFORMATION
  Report Type: Spontaneous
  Country: None (occurrence: US)
  Receive Date: 20160129
  Receipt Date: 20160129
  Transmission Date: 20160526
  Serious: No
  Sender: FDA-Public Use
  Company Number: US-MEDAC PHARMA, INC.-1047117

PATIENT
  Age: 68 Year
  Sex: Female
  Weight: 50.91 kg

DRUGS (1)
  1. RASUVO [Suspect]
     Active Substance: METHOTREXATE SODIUM
     Route: 058

REACTIONS (4)
  - Device malfunction [None]
  - Injection site haemorrhage [Recovered/Resolved]
  - Syringe issue [None]
  - Device issue [None]

NARRATIVE: CASE EVENT DATE: 20160111
